FAERS Safety Report 8213385-5 (Version None)
Quarter: 2012Q1

REPORT INFORMATION
  Report Type: 
  Country: None (occurrence: None)
  Receive Date: 20120315
  Receipt Date: 20120229
  Transmission Date: 20120608
  Serious: Yes (Other)
  Sender: FDA-Public Use
  Company Number: CHPA2012CA004176

PATIENT
  Age: 60 Year
  Sex: Male

DRUGS (1)
  1. OTRIVIN [Suspect]
     Indication: INSOMNIA
     Dosage: ONCE A NIGHT
     Route: 045
     Dates: start: 19960101

REACTIONS (3)
  - CHRONIC OBSTRUCTIVE PULMONARY DISEASE [None]
  - INCORRECT DRUG ADMINISTRATION DURATION [None]
  - OFF LABEL USE [None]
